FAERS Safety Report 22246247 (Version 1)
Quarter: 2023Q2

REPORT INFORMATION
  Report Type: Spontaneous
  Country: FR (occurrence: FR)
  Receive Date: 20230424
  Receipt Date: 20230424
  Transmission Date: 20230722
  Serious: Yes (Hospitalization)
  Sender: FDA-Public Use
  Company Number: None

PATIENT
  Age: 44 Year
  Sex: Female
  Weight: 98 kg

DRUGS (2)
  1. CISPLATIN [Suspect]
     Active Substance: CISPLATIN
     Indication: Uterine cancer
     Dosage: 80 MG
     Route: 042
     Dates: start: 20230327, end: 20230327
  2. CISPLATIN [Suspect]
     Active Substance: CISPLATIN
     Dosage: 80MG
     Route: 042
     Dates: start: 20230403, end: 20230403

REACTIONS (2)
  - Anaphylactoid reaction [Recovering/Resolving]
  - Rash erythematous [Recovered/Resolved]

NARRATIVE: CASE EVENT DATE: 20230404
